FAERS Safety Report 5476894-8 (Version None)
Quarter: 2007Q4

REPORT INFORMATION
  Report Type: 
  Country: None (occurrence: None)
  Receive Date: 20071004
  Receipt Date: 20070927
  Transmission Date: 20080405
  Serious: Yes (Hospitalization)
  Sender: FDA-Public Use
  Company Number: FR-AVENTIS-200713060FR

PATIENT
  Age: 59 Year
  Sex: Female

DRUGS (2)
  1. OFLOCET                            /00731801/ [Suspect]
     Route: 048
     Dates: start: 20070601, end: 20070610
  2. FLAGYL [Suspect]
     Route: 048
     Dates: start: 20070601, end: 20070610

REACTIONS (1)
  - PSEUDOMEMBRANOUS COLITIS [None]
